FAERS Safety Report 24127662 (Version 1)
Quarter: 2024Q3

REPORT INFORMATION
  Report Type: Spontaneous
  Country: US (occurrence: None)
  Receive Date: 20240723
  Receipt Date: 20240723
  Transmission Date: 20241017
  Serious: No
  Sender: Public
  Company Number: None

PATIENT
  Sex: Male

DRUGS (1)
  1. NUBEQA [Suspect]
     Active Substance: DAROLUTAMIDE
     Indication: Prostate cancer
     Dosage: 600MG TWICE A DAY ORAL?
     Route: 048
     Dates: start: 202405

REACTIONS (3)
  - Gait inability [None]
  - Asthenia [None]
  - Therapy change [None]
